FAERS Safety Report 16177892 (Version 1)
Quarter: 2019Q2

REPORT INFORMATION
  Report Type: Other
  Country: US (occurrence: US)
  Receive Date: 20190410
  Receipt Date: 20190410
  Transmission Date: 20190711
  Serious: Yes (Other)
  Sender: FDA-Public Use
  Company Number: US-FDC LIMITED-2065626

PATIENT
  Age: 50 Year
  Sex: Female

DRUGS (1)
  1. CIPROFLOXACIN. [Suspect]
     Active Substance: CIPROFLOXACIN
     Indication: CYSTITIS
     Route: 065

REACTIONS (3)
  - Bone marrow failure [Recovered/Resolved]
  - Oesophageal candidiasis [Recovered/Resolved]
  - Idiosyncratic drug reaction [Recovered/Resolved]
